FAERS Safety Report 6932395-9 (Version None)
Quarter: 2010Q3

REPORT INFORMATION
  Report Type: 
  Country: None (occurrence: None)
  Receive Date: 20100819
  Receipt Date: 20100813
  Transmission Date: 20110219
  Serious: Yes (Hospitalization)
  Sender: FDA-Public Use
  Company Number: FR-WYE-G06540910

PATIENT
  Sex: Female

DRUGS (6)
  1. PIPERACILLIN AND TAZOBACTAM [Suspect]
     Route: 042
     Dates: start: 20100605, end: 20100615
  2. OFLOXACIN [Suspect]
     Route: 042
     Dates: start: 20100605, end: 20100615
  3. DELURSAN [Concomitant]
     Route: 048
  4. NEXIUM [Concomitant]
     Dosage: UNKNOWN
     Route: 048
  5. IMUREL [Concomitant]
     Route: 048
  6. CORTANCYL [Concomitant]
     Route: 048

REACTIONS (3)
  - CONDITION AGGRAVATED [None]
  - PANCYTOPENIA [None]
  - PYREXIA [None]
